FAERS Safety Report 15660208 (Version 1)
Quarter: 2018Q4

REPORT INFORMATION
  Report Type: Spontaneous
  Country: DK (occurrence: DK)
  Receive Date: 20181127
  Receipt Date: 20181127
  Transmission Date: 20190205
  Serious: Yes (Hospitalization)
  Sender: FDA-Public Use
  Company Number: DK-TEVA-2018-DK-961269

PATIENT
  Sex: Female

DRUGS (6)
  1. TRUXAL 25MG [Concomitant]
     Dosage: 25 MILLIGRAM DAILY;
     Route: 065
  2. ANTABUSE [Suspect]
     Active Substance: DISULFIRAM
     Dosage: 600 MILLIGRAM DAILY;
     Route: 065
  3. MELATONIN 3MG [Concomitant]
     Dosage: 3 MILLIGRAM DAILY;
     Route: 065
  4. LAMICTAL [Concomitant]
     Active Substance: LAMOTRIGINE
     Dosage: 100 MILLIGRAM DAILY;
     Route: 065
  5. ANTABUSE [Suspect]
     Active Substance: DISULFIRAM
     Dosage: 200 MILLIGRAM DAILY;
     Route: 065
  6. OLANZAPIN 5MG [Concomitant]
     Dosage: 5 MILLIGRAM DAILY;
     Route: 065

REACTIONS (4)
  - Abdominal discomfort [Recovering/Resolving]
  - Diplopia [Unknown]
  - Mood swings [Unknown]
  - Discomfort [Recovering/Resolving]
